FAERS Safety Report 4517103-3 (Version None)
Quarter: 2004Q4

REPORT INFORMATION
  Report Type: 
  Country: None (occurrence: None)
  Receive Date: 20041130
  Receipt Date: 20041019
  Transmission Date: 20050328
  Serious: Yes (Hospitalization, Other)
  Sender: FDA-Public Use
  Company Number: EWC041040948

PATIENT
  Age: 67 Year
  Sex: Female
  Weight: 60 kg

DRUGS (3)
  1. ZYPREXA [Suspect]
     Indication: BIPOLAR I DISORDER
     Dosage: 20 MG DAY
     Dates: start: 20031101, end: 20040923
  2. LORAZEPAM [Concomitant]
  3. CLOTIAPINE [Concomitant]

REACTIONS (15)
  - ASPARTATE AMINOTRANSFERASE INCREASED [None]
  - BIPOLAR I DISORDER [None]
  - BLOOD LACTATE DEHYDROGENASE INCREASED [None]
  - BONE PAIN [None]
  - FEMUR FRACTURE [None]
  - HYPERHIDROSIS [None]
  - JOINT DISLOCATION [None]
  - LEUKOCYTOSIS [None]
  - LEUKOPENIA [None]
  - MUCOSAL DRYNESS [None]
  - NEUROLEPTIC MALIGNANT SYNDROME [None]
  - PLEUROTHOTONUS [None]
  - POST PROCEDURAL COMPLICATION [None]
  - RHABDOMYOLYSIS [None]
  - TREMOR [None]
